FAERS Safety Report 4701878-4 (Version None)
Quarter: 2005Q2

REPORT INFORMATION
  Report Type: 
  Country: None (occurrence: None)
  Receive Date: 20050627
  Receipt Date: 20050610
  Transmission Date: 20051028
  Serious: Yes (Life-Threatening, Hospitalization)
  Sender: FDA-Public Use
  Company Number: 2005SP001129

PATIENT
  Age: 15 Year
  Sex: Male
  Weight: 58.2 kg

DRUGS (1)
  1. LEVALBUTEROL MDI-HFA (TARTRATE) (90 UG) [Suspect]
     Indication: ASTHMA
     Dosage: 90 UG; INHALATION
     Route: 055
     Dates: start: 20041227, end: 20050608

REACTIONS (4)
  - BLOOD PH DECREASED [None]
  - SOMNOLENCE [None]
  - STATUS ASTHMATICUS [None]
  - THERAPY NON-RESPONDER [None]
